FAERS Safety Report 6128241-6 (Version None)
Quarter: 2009Q1

REPORT INFORMATION
  Report Type: 
  Country: None (occurrence: None)
  Receive Date: 20090319
  Receipt Date: 20090305
  Transmission Date: 20090719
  Serious: Yes (Hospitalization)
  Sender: FDA-Public Use
  Company Number: 02100-JPN-06-0297

PATIENT
  Age: 64 Year
  Sex: Female

DRUGS (4)
  1. PLETAL [Suspect]
     Indication: CEREBRAL INFARCTION
     Dosage: 100 MG, BID ORAL
     Route: 048
     Dates: start: 20060517, end: 20060525
  2. ASPIRIN [Concomitant]
  3. ATROVASTATIN (ATROVASTATIN) [Concomitant]
  4. VACCINIUM MYRTILLUS EXTRACT (VACCINIUM MYRTILLUS EXTRACT) [Concomitant]

REACTIONS (4)
  - EXTRADURAL HAEMATOMA [None]
  - INTRACRANIAL ANEURYSM [None]
  - POST PROCEDURAL COMPLICATION [None]
  - SUBDURAL HAEMATOMA [None]
